FAERS Safety Report 9498541 (Version 1)
Quarter: 2013Q3

REPORT INFORMATION
  Report Type: Spontaneous
  Country: DE (occurrence: DE)
  Receive Date: 20130904
  Receipt Date: 20130904
  Transmission Date: 20140515
  Serious: Yes (Death)
  Sender: FDA-Public Use
  Company Number: DE-BRISTOL-MYERS SQUIBB COMPANY-19242130

PATIENT
  Age: 31 Year
  Sex: Female

DRUGS (5)
  1. ABILIFY [Suspect]
     Indication: SCHIZOPHRENIA, PARANOID TYPE
     Route: 048
     Dates: end: 20050816
  2. TIMONIL [Suspect]
     Route: 048
     Dates: end: 20050816
  3. TRUXAL [Suspect]
     Route: 048
     Dates: end: 20050816
  4. QUILONUM [Suspect]
     Route: 048
     Dates: start: 20050815, end: 20050816
  5. HALDOL DECANOATE [Suspect]
     Route: 030

REACTIONS (1)
  - Coronary artery occlusion [Fatal]
